FAERS Safety Report 11758870 (Version 2)
Quarter: 2015Q4

REPORT INFORMATION
  Report Type: Spontaneous
  Country: US (occurrence: US)
  Receive Date: 20151120
  Receipt Date: 20151127
  Transmission Date: 20160304
  Serious: Yes (Hospitalization)
  Sender: FDA-Public Use
  Company Number: US-PFIZER INC-2015391909

PATIENT
  Age: 62 Year
  Sex: Male
  Weight: 82 kg

DRUGS (26)
  1. ACETAMINOPHEN W/HYDROCODONE [Concomitant]
     Active Substance: ACETAMINOPHEN\HYDROCODONE
  2. TIOTROPIUM [Concomitant]
     Active Substance: TIOTROPIUM
  3. ASCORBIC ACID. [Concomitant]
     Active Substance: ASCORBIC ACID
  4. OMEGA 3 [Concomitant]
     Active Substance: OMEGA-3 FATTY ACIDS
  5. FERROUS SULFATE [Concomitant]
     Active Substance: FERROUS SULFATE\FERROUS SULFATE, DRIED
  6. LOSARTAN. [Concomitant]
     Active Substance: LOSARTAN
  7. IPRATROPIUM [Concomitant]
     Active Substance: IPRATROPIUM
  8. CHOLECALCIFEROL [Concomitant]
     Active Substance: CHOLECALCIFEROL
  9. THIAMINE. [Concomitant]
     Active Substance: THIAMINE
  10. ALPRAZOLAM. [Concomitant]
     Active Substance: ALPRAZOLAM
  11. RIFAMPIN. [Concomitant]
     Active Substance: RIFAMPIN
  12. ALBUTEROL. [Concomitant]
     Active Substance: ALBUTEROL
  13. TUBERCULIN NOS [Concomitant]
     Active Substance: TUBERCULIN PURIFIED PROTEIN DERIVATIVE
  14. LATANOPROST. [Concomitant]
     Active Substance: LATANOPROST
  15. TESTOSTERONE CIPIONATE [Suspect]
     Active Substance: TESTOSTERONE
     Dosage: CHANGE NIGHTLY, CAME DOWN FROM 2 PATCHES TO 1
  16. DOCUSATE [Concomitant]
     Active Substance: DOCUSATE
  17. FUROSEMIDE. [Concomitant]
     Active Substance: FUROSEMIDE
     Dosage: UNK
  18. LANSOPRAZOLE. [Concomitant]
     Active Substance: LANSOPRAZOLE
  19. ETHAMBUTOL [Concomitant]
     Active Substance: ETHAMBUTOL HYDROCHLORIDE
  20. ISONIAZID. [Concomitant]
     Active Substance: ISONIAZID
  21. FLUTICASONE [Concomitant]
     Active Substance: FLUTICASONE\FLUTICASONE PROPIONATE
  22. VIAGRA [Suspect]
     Active Substance: SILDENAFIL CITRATE
     Indication: MUSCULAR WEAKNESS
     Dosage: UNK
  23. VITAMINE [Concomitant]
  24. ZOLPIDEM [Concomitant]
     Active Substance: ZOLPIDEM\ZOLPIDEM TARTRATE
  25. FOLIC ACID. [Concomitant]
     Active Substance: FOLIC ACID
  26. LORATADINE. [Concomitant]
     Active Substance: LORATADINE

REACTIONS (2)
  - Infection [Recovered/Resolved]
  - Product use issue [Unknown]

NARRATIVE: CASE EVENT DATE: 201510
